FAERS Safety Report 11350171 (Version 6)
Quarter: 2015Q3

REPORT INFORMATION
  Report Type: Spontaneous
  Country: US (occurrence: US)
  Receive Date: 20150807
  Receipt Date: 20150928
  Transmission Date: 20151125
  Serious: Yes (Hospitalization)
  Sender: FDA-Public Use
  Company Number: US-JNJFOC-20150800117

PATIENT
  Age: 63 Year
  Sex: Male
  Weight: 179.17 kg

DRUGS (5)
  1. CLARITIN [Concomitant]
     Active Substance: LORATADINE
     Route: 065
  2. XARELTO [Suspect]
     Active Substance: RIVAROXABAN
     Indication: ATRIAL FIBRILLATION
     Route: 048
     Dates: start: 2014, end: 20150729
  3. LASIX [Concomitant]
     Active Substance: FUROSEMIDE
     Route: 065
  4. PROBIOTIC [Concomitant]
     Active Substance: PROBIOTICS NOS
     Route: 065
  5. XARELTO [Suspect]
     Active Substance: RIVAROXABAN
     Indication: CEREBROVASCULAR ACCIDENT PROPHYLAXIS
     Route: 048
     Dates: start: 2014, end: 20150729

REACTIONS (5)
  - Stoma site haemorrhage [Recovering/Resolving]
  - Platelet count decreased [Unknown]
  - Haemoglobin decreased [Unknown]
  - Myelodysplastic syndrome [Unknown]
  - International normalised ratio abnormal [Unknown]

NARRATIVE: CASE EVENT DATE: 20150719
